FAERS Safety Report 5708510-1 (Version None)
Quarter: 2008Q2

REPORT INFORMATION
  Report Type: 
  Country: None (occurrence: None)
  Receive Date: 20080417
  Receipt Date: 20071109
  Transmission Date: 20081010
  Serious: No
  Sender: FDA-Public Use
  Company Number: US-BRISTOL-MYERS SQUIBB COMPANY-13977962

PATIENT
  Age: 48 Year
  Sex: Female
  Weight: 50 kg

DRUGS (9)
  1. CARBOPLATIN [Suspect]
     Indication: OVARIAN CANCER
     Dosage: 2ND INFUSION GIVEN ON 31-OCT-2007
     Dates: start: 20071010
  2. FLOMAX [Concomitant]
  3. NIFEREX [Concomitant]
  4. PACLITAXEL [Concomitant]
  5. DEXAMETHASONE TAB [Concomitant]
  6. EMEND [Concomitant]
  7. ALOXI [Concomitant]
  8. DIPHENHYDRAMINE [Concomitant]
  9. RANITIDINE [Concomitant]

REACTIONS (1)
  - EAR CONGESTION [None]
